FAERS Safety Report 4446793-9 (Version None)
Quarter: 2004Q3

REPORT INFORMATION
  Report Type: 
  Country: None (occurrence: None)
  Receive Date: 20040910
  Receipt Date: 20040823
  Transmission Date: 20050211
  Serious: Yes (Hospitalization)
  Sender: FDA-Public Use
  Company Number: 203471

PATIENT
  Age: 52 Year
  Sex: Female

DRUGS (3)
  1. AVONEX [Suspect]
     Indication: MULTIPLE SCLEROSIS
     Dosage: 30 MCG QW IM
     Route: 030
     Dates: start: 19980101, end: 20040101
  2. AVONEX [Suspect]
     Indication: MULTIPLE SCLEROSIS
     Dosage: 30 MCG QW IM
     Route: 030
     Dates: start: 20040101
  3. MEDICATION (NOS) [Concomitant]

REACTIONS (9)
  - ARTHRALGIA [None]
  - CONDITION AGGRAVATED [None]
  - FALL [None]
  - MULTIPLE SCLEROSIS [None]
  - MYALGIA [None]
  - PAIN IN EXTREMITY [None]
  - PNEUMONIA [None]
  - ROTATOR CUFF SYNDROME [None]
  - TENDON RUPTURE [None]
